FAERS Safety Report 5037538-2 (Version None)
Quarter: 2006Q2

REPORT INFORMATION
  Report Type: 
  Country: None (occurrence: None)
  Receive Date: 20060607
  Receipt Date: 20060218
  Transmission Date: 20061013
  Serious: No
  Sender: FDA-Public Use
  Company Number: 33937

PATIENT
  Sex: Female

DRUGS (5)
  1. NEVANAC [Suspect]
     Indication: PROPHYLAXIS
     Dates: start: 20060207, end: 20060212
  2. ZYMAR [Concomitant]
  3. PRED FORTE [Concomitant]
  4. TOBRADEX [Concomitant]
  5. REFRESH [Concomitant]

REACTIONS (3)
  - CORNEAL EPITHELIUM DEFECT [None]
  - CORNEAL OPACITY [None]
  - VISUAL ACUITY REDUCED [None]
